FAERS Safety Report 26086842 (Version 1)
Quarter: 2025Q4

REPORT INFORMATION
  Report Type: Spontaneous
  Country: US (occurrence: None)
  Receive Date: 20251124
  Receipt Date: 20251124
  Transmission Date: 20260118
  Serious: Yes (Life-Threatening)
  Sender: FDA-CTU
  Company Number: None

PATIENT
  Age: 37 Year
  Sex: Female

DRUGS (3)
  1. ZOLOFT [Suspect]
     Active Substance: SERTRALINE HYDROCHLORIDE
     Dates: start: 20190501
  2. KLONOPIN [Suspect]
     Active Substance: CLONAZEPAM
     Dates: start: 20190501
  3. AMBIEN [Suspect]
     Active Substance: ZOLPIDEM TARTRATE

REACTIONS (7)
  - Memory impairment [None]
  - Withdrawal syndrome [None]
  - Muscle twitching [None]
  - Suicidal ideation [None]
  - Paranoia [None]
  - Crying [None]
  - Hyperventilation [None]
